FAERS Safety Report 6554539-3 (Version None)
Quarter: 2010Q1

REPORT INFORMATION
  Report Type: 
  Country: None (occurrence: None)
  Receive Date: 20100127
  Receipt Date: 20100115
  Transmission Date: 20100710
  Serious: Yes (Hospitalization)
  Sender: FDA-Public Use
  Company Number: PHEH2010US00609

PATIENT
  Sex: Female
  Weight: 28.9 kg

DRUGS (9)
  1. EXJADE [Suspect]
     Indication: SERUM FERRITIN INCREASED
     Dosage: 500 MG, QD
     Route: 048
     Dates: start: 20091008, end: 20100108
  2. EXJADE [Suspect]
     Indication: MYELODYSPLASTIC SYNDROME
  3. ACYCLOVIR [Concomitant]
     Indication: ANTIVIRAL TREATMENT
     Dosage: 170 MG, Q12H
     Route: 042
  4. ARANESP [Concomitant]
     Indication: ANAEMIA
     Dosage: 25 UG, QW
     Route: 058
  5. NEXIUM [Concomitant]
     Indication: GASTROOESOPHAGEAL REFLUX DISEASE
     Dosage: 20 MG, Q12H
     Route: 042
  6. FAMOTIDINE [Concomitant]
     Dosage: 20 MG DAILY
     Route: 042
  7. METHYLPREDNISOLONE [Concomitant]
     Indication: GRAFT VERSUS HOST DISEASE
     Dosage: 30 MG DAILY
     Route: 042
  8. MICAFUNGIN [Concomitant]
     Indication: ANTIFUNGAL TREATMENT
     Dosage: 34 MG DAILY
     Route: 042
  9. ZOSYN [Concomitant]
     Indication: ANTIBIOTIC THERAPY
     Dosage: 1750 MG, Q6H

REACTIONS (5)
  - BK VIRUS INFECTION [None]
  - CLOSTRIDIUM DIFFICILE COLITIS [None]
  - CONCOMITANT DISEASE AGGRAVATED [None]
  - MICROANGIOPATHY [None]
  - VOMITING [None]
